FAERS Safety Report 10335898 (Version 1)
Quarter: 2014Q3

REPORT INFORMATION
  Report Type: Spontaneous
  Country: US (occurrence: US)
  Receive Date: 20140723
  Receipt Date: 20140723
  Transmission Date: 20150326
  Serious: Yes (Hospitalization, Other)
  Sender: FDA-Public Use
  Company Number: US-BRISTOL-MYERS SQUIBB COMPANY-19208677

PATIENT
  Age: 67 Year
  Sex: Female
  Weight: 90.25 kg

DRUGS (13)
  1. WELLBUTRIN [Concomitant]
     Active Substance: BUPROPION HYDROCHLORIDE
  2. VITAMIN D [Concomitant]
     Active Substance: CHOLECALCIFEROL
     Dosage: 1DF:50000 UNITS
  3. TIZANIDINE HCL [Concomitant]
     Active Substance: TIZANIDINE HYDROCHLORIDE
     Indication: MYALGIA
  4. TRAMADOL [Concomitant]
     Active Substance: TRAMADOL
     Dosage: 1DF:2 TABS
  5. ALPRAZOLAM. [Concomitant]
     Active Substance: ALPRAZOLAM
  6. PANTOPRAZOLE [Concomitant]
     Active Substance: PANTOPRAZOLE SODIUM
  7. FEXOFENADINE HCL [Concomitant]
     Active Substance: FEXOFENADINE HYDROCHLORIDE
  8. AMLODIPINE [Concomitant]
     Active Substance: AMLODIPINE BESYLATE
  9. COREG [Concomitant]
     Active Substance: CARVEDILOL
  10. COUMADIN [Suspect]
     Active Substance: WARFARIN SODIUM
     Indication: COAGULATION FACTOR V LEVEL ABNORMAL
     Dosage: 1DF:10 MG FOR 1 DAY?1DF;12.5MG FOR OTHER 6 DAYS?COUMADIN 2.5 MG:13FE14:?5MG:6MAY14?10MG:5MAY14
  11. SYNTHROID [Concomitant]
     Active Substance: LEVOTHYROXINE SODIUM
  12. LASIX [Concomitant]
     Active Substance: FUROSEMIDE
  13. POTASSIUM CHLORIDE. [Concomitant]
     Active Substance: POTASSIUM CHLORIDE

REACTIONS (3)
  - Pulmonary thrombosis [Unknown]
  - Deep vein thrombosis [Unknown]
  - International normalised ratio fluctuation [Unknown]
